FAERS Safety Report 21773746 (Version 2)
Quarter: 2023Q1

REPORT INFORMATION
  Report Type: Report from Study
  Country: CN (occurrence: None)
  Receive Date: 20221223
  Receipt Date: 20230118
  Transmission Date: 20230417
  Serious: Yes (Hospitalization)
  Sender: FDA-Public Use
  Company Number: 2022A411211

PATIENT
  Age: 22255 Day
  Sex: Male

DRUGS (80)
  1. DURVALUMAB [Suspect]
     Active Substance: DURVALUMAB
     Indication: Non-small cell lung cancer
     Route: 042
     Dates: start: 20220930, end: 20220930
  2. DURVALUMAB [Suspect]
     Active Substance: DURVALUMAB
     Indication: Non-small cell lung cancer
     Route: 042
     Dates: start: 20221028, end: 20221028
  3. DURVALUMAB [Suspect]
     Active Substance: DURVALUMAB
     Indication: Non-small cell lung cancer
     Route: 042
     Dates: start: 20221118, end: 20221118
  4. PEMETREXED [Suspect]
     Active Substance: PEMETREXED
     Indication: Non-small cell lung cancer
     Route: 042
     Dates: start: 20220930, end: 20220930
  5. PEMETREXED [Suspect]
     Active Substance: PEMETREXED
     Indication: Non-small cell lung cancer
     Route: 042
     Dates: start: 20221028, end: 20221028
  6. PEMETREXED [Suspect]
     Active Substance: PEMETREXED
     Indication: Non-small cell lung cancer
     Route: 042
     Dates: start: 20221118, end: 20221118
  7. CARBOPLATIN [Suspect]
     Active Substance: CARBOPLATIN
     Indication: Non-small cell lung cancer
     Dosage: 4.5 AUC EVERY THREE WEEKS
     Route: 042
     Dates: start: 20220930, end: 20220930
  8. CARBOPLATIN [Suspect]
     Active Substance: CARBOPLATIN
     Indication: Non-small cell lung cancer
     Dosage: 4.7 AUC EVERY THREE WEEKS
     Route: 042
     Dates: start: 20221028, end: 20221028
  9. CARBOPLATIN [Suspect]
     Active Substance: CARBOPLATIN
     Indication: Non-small cell lung cancer
     Dosage: 4.8 AUC EVERY THREE WEEKS
     Route: 042
     Dates: start: 20221118, end: 20221118
  10. MAGNESIUM ISOGLYCYRRHIZINATE INJECTION [Concomitant]
     Indication: Liver transplant rejection
     Route: 042
     Dates: start: 20221208, end: 20221211
  11. CALCII DIBUTYRY-LADENOSI NI CYCLOPHOSPHAS FOR INJECTION [Concomitant]
     Indication: Myocardial depression
     Route: 042
     Dates: start: 20221116, end: 20221120
  12. CALCII DIBUTYRY-LADENOSI NI CYCLOPHOSPHAS FOR INJECTION [Concomitant]
     Indication: Myocardial depression
     Route: 042
     Dates: start: 20221208, end: 20221211
  13. CALCII DIBUTYRY-LADENOSI NI CYCLOPHOSPHAS FOR INJECTION [Concomitant]
     Indication: Myocardial depression
     Route: 042
     Dates: start: 20221216, end: 20221221
  14. POTASSIUM CHLORIDE INJECTION10% [Concomitant]
     Indication: Mineral supplementation
     Route: 042
     Dates: start: 20221116, end: 20221120
  15. POTASSIUM CHLORIDE INJECTION10% [Concomitant]
     Indication: Mineral supplementation
     Route: 042
     Dates: start: 20221118, end: 20221118
  16. POTASSIUM CHLORIDE INJECTION10% [Concomitant]
     Indication: Mineral supplementation
     Route: 042
     Dates: start: 20221118, end: 20221118
  17. POTASSIUM CHLORIDE INJECTION10% [Concomitant]
     Indication: Mineral supplementation
     Route: 042
     Dates: start: 20221208, end: 20221211
  18. POTASSIUM CHLORIDE INJECTION10% [Concomitant]
     Indication: Mineral supplementation
     Route: 042
     Dates: start: 20221208, end: 20221211
  19. POTASSIUM CHLORIDE INJECTION10% [Concomitant]
     Indication: Mineral supplementation
     Route: 042
     Dates: start: 20221208, end: 20221211
  20. POTASSIUM CHLORIDE INJECTION10% [Concomitant]
     Indication: Mineral supplementation
     Route: 042
     Dates: start: 20221209, end: 20221209
  21. POTASSIUM CHLORIDE INJECTION10% [Concomitant]
     Indication: Mineral supplementation
     Route: 042
     Dates: start: 20221209, end: 20221209
  22. POTASSIUM CHLORIDE INJECTION10% [Concomitant]
     Indication: Mineral supplementation
     Route: 042
     Dates: start: 20221210, end: 20221210
  23. POTASSIUM CHLORIDE INJECTION10% [Concomitant]
     Indication: Mineral supplementation
     Route: 042
     Dates: start: 20221210, end: 20221210
  24. POTASSIUM CHLORIDE INJECTION10% [Concomitant]
     Indication: Mineral supplementation
     Route: 042
     Dates: start: 20221211, end: 20221211
  25. POTASSIUM CHLORIDE INJECTION10% [Concomitant]
     Indication: Mineral supplementation
     Route: 042
     Dates: start: 20221216, end: 20221221
  26. INSULIN NOS [Concomitant]
     Active Substance: INSULIN NOS
     Indication: Blood glucose
     Route: 042
     Dates: start: 20221116, end: 20221120
  27. INSULIN NOS [Concomitant]
     Active Substance: INSULIN NOS
     Indication: Blood glucose
     Route: 042
     Dates: start: 20221208, end: 20221211
  28. SODIUM GLUCURONIC ACID INJECTION [Concomitant]
     Indication: Liver transplant rejection
     Route: 042
     Dates: start: 20221116, end: 20221120
  29. SODIUM GLUCURONIC ACID INJECTION [Concomitant]
     Indication: Liver transplant rejection
     Route: 042
     Dates: start: 20221208, end: 20221211
  30. SODIUM GLUCURONIC ACID INJECTION [Concomitant]
     Indication: Liver transplant rejection
     Route: 042
     Dates: start: 20221216, end: 20221221
  31. FAT-SOLUBLE VITAMIN(II) [Concomitant]
     Indication: Vitamin supplementation
     Route: 042
     Dates: start: 20221116, end: 20221120
  32. FAT-SOLUBLE VITAMIN(II) [Concomitant]
     Indication: Vitamin supplementation
     Route: 042
     Dates: start: 20221208, end: 20221211
  33. FAT-SOLUBLE VITAMIN(II) [Concomitant]
     Indication: Vitamin supplementation
     Route: 042
     Dates: start: 20221210, end: 20221210
  34. BROMHEXINE HYDROCHLORIDE AND GLUCOSE INJECTION [Concomitant]
     Indication: Productive cough
     Route: 042
     Dates: start: 20221116, end: 20221120
  35. TANREQING INJECTION [Concomitant]
     Indication: Productive cough
     Route: 042
     Dates: start: 20221116, end: 20221120
  36. TANREQING INJECTION [Concomitant]
     Indication: Productive cough
     Route: 042
     Dates: start: 20221208, end: 20221211
  37. FOLIC ACID [Concomitant]
     Active Substance: FOLIC ACID
     Indication: Premedication
     Route: 048
     Dates: start: 20221118, end: 20221120
  38. FOLIC ACID [Concomitant]
     Active Substance: FOLIC ACID
     Indication: Premedication
     Route: 048
     Dates: start: 20221209, end: 20221211
  39. DEXAMETHASONE ACETATE [Concomitant]
     Active Substance: DEXAMETHASONE ACETATE
     Indication: Premedication
     Route: 048
     Dates: start: 20221118, end: 20221120
  40. DEXAMETHASONE ACETATE [Concomitant]
     Active Substance: DEXAMETHASONE ACETATE
     Indication: Premedication
     Route: 048
     Dates: start: 20221209, end: 20221210
  41. MOXIFLOXACIN HYDROCHLORIDE AND SODIUM CHLORIDE INJECTION [Concomitant]
     Indication: Antiinflammatory therapy
     Route: 042
     Dates: start: 20221216, end: 20221221
  42. MOXIFLOXACIN HYDROCHLORIDE AND SODIUM CHLORIDE INJECTION [Concomitant]
     Indication: Infection
     Route: 042
     Dates: start: 20221216, end: 20221221
  43. TROPISETRON HYDROCHLORIDE INJECTION [Concomitant]
     Indication: Vomiting
     Route: 042
     Dates: start: 20221118, end: 20221120
  44. TROPISETRON HYDROCHLORIDE INJECTION [Concomitant]
     Indication: Vomiting
     Route: 042
     Dates: start: 20221209, end: 20221210
  45. OMEPRAZOLE SODIUM FOR INJECTION [Concomitant]
     Indication: Inhibin A
     Route: 042
     Dates: start: 20221118, end: 20221120
  46. OMEPRAZOLE SODIUM FOR INJECTION [Concomitant]
     Indication: Inhibin A
     Route: 042
     Dates: start: 20221209, end: 20221210
  47. TANREQING CAPSULE [Concomitant]
     Indication: Productive cough
     Route: 048
     Dates: start: 20221120
  48. TANREQING CAPSULE [Concomitant]
     Indication: Productive cough
     Route: 048
     Dates: start: 20221211, end: 20221216
  49. IOPAMIDOL [Concomitant]
     Active Substance: IOPAMIDOL
     Indication: Radiotherapy
     Route: 042
     Dates: start: 20221116, end: 20221116
  50. DEXAMETHASONE SODIUM PHOSPHATE [Concomitant]
     Active Substance: DEXAMETHASONE SODIUM PHOSPHATE
     Indication: Radiotherapy
     Route: 042
     Dates: start: 20221116, end: 20221116
  51. COMPOUND MEGLUMINE DIATRIZOATE INJECTION [Concomitant]
     Indication: Radiotherapy
     Route: 042
     Dates: start: 20221116, end: 20221116
  52. DENGZHAN SHENGMAI CAPSULE [Concomitant]
     Indication: Vitamin supplementation
     Route: 048
     Dates: start: 20221120
  53. DENGZHAN SHENGMAI CAPSULE [Concomitant]
     Indication: Vitamin supplementation
     Route: 048
     Dates: start: 20221211, end: 20221216
  54. VITAMINS [Concomitant]
     Active Substance: VITAMINS
     Indication: Vitamin supplementation
     Route: 042
     Dates: start: 20221118, end: 20221118
  55. VITAMINS [Concomitant]
     Active Substance: VITAMINS
     Indication: Vitamin supplementation
     Route: 042
     Dates: start: 20221209, end: 20221209
  56. METOCLOPRAMIDEDI HYDROCHLORIDE INJECTION [Concomitant]
     Indication: Vomiting
     Route: 042
     Dates: start: 20221118, end: 20221118
  57. METOCLOPRAMIDEDI HYDROCHLORIDE INJECTION [Concomitant]
     Indication: Vomiting
     Route: 042
     Dates: start: 20221209, end: 20221209
  58. METOCLOPRAMIDEDI HYDROCHLORIDE INJECTION [Concomitant]
     Indication: Vomiting
     Route: 042
     Dates: start: 20221210, end: 20221210
  59. FUROSEMIDE [Concomitant]
     Active Substance: FUROSEMIDE
     Indication: Polyuria
     Route: 042
     Dates: start: 20221118, end: 20221118
  60. FUROSEMIDE [Concomitant]
     Active Substance: FUROSEMIDE
     Indication: Polyuria
     Route: 042
     Dates: start: 20221209, end: 20221209
  61. FUROSEMIDE [Concomitant]
     Active Substance: FUROSEMIDE
     Indication: Polyuria
     Route: 042
     Dates: start: 20221210, end: 20221210
  62. CONCENTRATED SODIUM CHLORIDE INJECTION [Concomitant]
     Indication: Blood sodium
     Route: 042
     Dates: start: 20221118, end: 20221118
  63. CONCENTRATED SODIUM CHLORIDE INJECTION [Concomitant]
     Indication: Blood sodium
     Route: 042
     Dates: start: 20221209, end: 20221209
  64. CONCENTRATED SODIUM CHLORIDE INJECTION [Concomitant]
     Indication: Blood sodium
     Route: 042
     Dates: start: 20221210, end: 20221210
  65. MONOAMMONIUM GLYCYRRHIZINATE AND CYSTEINE AND SODIUM CHLORIDE INJEC... [Concomitant]
     Indication: Liver transplant rejection
     Route: 042
     Dates: start: 20221216, end: 20221221
  66. GINKGOLIDE INJECTION [Concomitant]
     Indication: Collateral circulation
     Route: 042
     Dates: start: 20221210, end: 20221210
  67. GINKGOLIDE INJECTION [Concomitant]
     Indication: Collateral circulation
     Route: 042
     Dates: start: 20221211, end: 20221211
  68. VITAMIN B6 [Concomitant]
     Active Substance: PYRIDOXINE HYDROCHLORIDE
     Indication: Vitamin supplementation
     Route: 042
     Dates: start: 20221118, end: 20221118
  69. VITAMIN B6 [Concomitant]
     Active Substance: PYRIDOXINE HYDROCHLORIDE
     Indication: Vitamin supplementation
     Route: 042
     Dates: start: 20221209, end: 20221209
  70. HUMAN GRANULOCYTE STIMULATING FACTOR INJECTION [Concomitant]
     Indication: Leukocytosis
     Dosage: 150UG/INHAL DAILY
     Route: 058
     Dates: start: 20221209, end: 20221211
  71. HUMAN GRANULOCYTE STIMULATING FACTOR INJECTION [Concomitant]
     Indication: Leukocytosis
     Dosage: 150UG/INHAL DAILY
     Route: 030
     Dates: start: 20221208, end: 20221208
  72. HUMAN GRANULOCYTE STIMULATING FACTOR INJECTION [Concomitant]
     Indication: Leukocytosis
     Dosage: 150UG/INHAL DAILY
     Route: 058
     Dates: start: 20221216, end: 20221219
  73. HUMAN GRANULOCYTE STIMULATING FACTOR INJECTION [Concomitant]
     Indication: Leukocytosis
     Dosage: 150UG/INHAL DAILY
     Route: 042
     Dates: start: 20221216, end: 20221216
  74. YIXUESHENG CAPSULE [Concomitant]
     Indication: Kidney small
     Route: 048
     Dates: start: 20221211, end: 20221218
  75. LEUCOGEN TABLETS [Concomitant]
     Indication: Myelosuppression
     Route: 048
     Dates: start: 20221211
  76. LEUCOGEN TABLETS [Concomitant]
     Indication: Leukocytosis
     Route: 048
     Dates: start: 20221211
  77. LEUCOGEN TABLETS [Concomitant]
     Indication: Myelosuppression
     Route: 048
     Dates: start: 20221216, end: 20221216
  78. LEUCOGEN TABLETS [Concomitant]
     Indication: Leukocytosis
     Route: 048
     Dates: start: 20221216, end: 20221216
  79. HUMAN ERYTHROPOIETIN INJECTION [Concomitant]
     Indication: Polycythaemia
     Route: 058
     Dates: start: 20221216, end: 20221216
  80. IRON POLYSACCHARIDE COMPLEX CAPSULES [Concomitant]
     Indication: Polycythaemia
     Route: 048
     Dates: start: 20221216, end: 20221216

REACTIONS (1)
  - Granulocytopenia [Recovered/Resolved]

NARRATIVE: CASE EVENT DATE: 20221216
